FAERS Safety Report 4843108-9 (Version None)
Quarter: 2005Q4

REPORT INFORMATION
  Report Type: 
  Country: None (occurrence: None)
  Receive Date: 20051027
  Receipt Date: 20050822
  Transmission Date: 20060501
  Serious: No
  Sender: FDA-Public Use
  Company Number: ZICO001280

PATIENT
  Age: 64 Year
  Sex: Male

DRUGS (3)
  1. PRIALT [Suspect]
     Dosage: (10057097)
     Dates: start: 20050817
  2. MORPHINE [Concomitant]
  3. CLONIDINE [Concomitant]

REACTIONS (2)
  - FATIGUE [None]
  - PAIN [None]
